FAERS Safety Report 15889984 (Version 2)
Quarter: 2019Q2

REPORT INFORMATION
  Report Type: Spontaneous
  Country: US (occurrence: US)
  Receive Date: 20190130
  Receipt Date: 20190416
  Transmission Date: 20190711
  Serious: Yes (Other)
  Sender: FDA-Public Use
  Company Number: US-ASTRAZENECA-2018SF33639

PATIENT
  Age: 81 Year
  Sex: Female
  Weight: 81.6 kg

DRUGS (19)
  1. PRILOSEC [Suspect]
     Active Substance: OMEPRAZOLE MAGNESIUM
     Indication: GASTROOESOPHAGEAL REFLUX DISEASE
     Route: 048
     Dates: start: 1998, end: 2017
  2. VASOCON-A [Concomitant]
     Active Substance: ANTAZOLINE PHOSPHATE\NAPHAZOLINE HYDROCHLORIDE
     Dosage: EVERY 6 HOURS AS NEEDED
     Dates: start: 20020429
  3. ALLEGRA [Concomitant]
     Active Substance: FEXOFENADINE HYDROCHLORIDE
     Dosage: DAILY
     Route: 048
     Dates: start: 20020610
  4. CALCIUM [Concomitant]
     Active Substance: CALCIUM
  5. FAMOTIDINE. [Concomitant]
     Active Substance: FAMOTIDINE
  6. RANITIDINE. [Concomitant]
     Active Substance: RANITIDINE
  7. NEXIUM [Suspect]
     Active Substance: ESOMEPRAZOLE MAGNESIUM
     Indication: GASTROOESOPHAGEAL REFLUX DISEASE
     Dosage: 40.0MG UNKNOWN
     Route: 048
     Dates: start: 199811, end: 2017
  8. SULFAMETHOXAZOLE-TRIMETHOPRIM [Concomitant]
     Active Substance: SULFAMETHOXAZOLE\TRIMETHOPRIM
     Dosage: TWICE DAILY
     Route: 048
     Dates: start: 20020429
  9. CELEBREX [Concomitant]
     Active Substance: CELECOXIB
     Route: 048
     Dates: start: 20020608
  10. SYNTHROID [Concomitant]
     Active Substance: LEVOTHYROXINE SODIUM
     Route: 048
     Dates: start: 20021014
  11. CIMETIDINE [Concomitant]
     Active Substance: CIMETIDINE
  12. CEFTIN [Concomitant]
     Active Substance: CEFUROXIME AXETIL
     Route: 048
     Dates: start: 20020625
  13. TRIMOX [Concomitant]
     Active Substance: AMOXICILLIN
     Route: 048
     Dates: start: 20020820
  14. ZYRTEC [Concomitant]
     Active Substance: CETIRIZINE HYDROCHLORIDE
     Dosage: 10 MG AT BEDTIME
     Route: 048
     Dates: start: 20020820, end: 20030418
  15. NEXIUM 24HR [Suspect]
     Active Substance: ESOMEPRAZOLE MAGNESIUM
     Indication: GASTROOESOPHAGEAL REFLUX DISEASE
     Route: 048
     Dates: start: 1998, end: 2017
  16. PRILOSEC [Suspect]
     Active Substance: OMEPRAZOLE MAGNESIUM
     Indication: GASTROOESOPHAGEAL REFLUX DISEASE
     Dosage: GENERIC OMEPRAZOLE
     Route: 065
     Dates: start: 1998, end: 2017
  17. MURO 128 [Concomitant]
     Active Substance: SODIUM CHLORIDE
     Dosage: ONE DROP INTO EACH EYE DAILY
     Dates: start: 20021119
  18. BELLA ALK/PB [Concomitant]
     Dosage: TAKE ONE TO TWO TABLETS BY MOUTH EVERY 6 HOURS AS NEEDED
     Route: 048
     Dates: start: 20021119
  19. VITAMIN C [Concomitant]
     Active Substance: ASCORBIC ACID

REACTIONS (2)
  - Chronic kidney disease [Not Recovered/Not Resolved]
  - Renal failure [Unknown]

NARRATIVE: CASE EVENT DATE: 20130110
